FAERS Safety Report 7687308-1 (Version None)
Quarter: 2011Q3

REPORT INFORMATION
  Report Type: 
  Country: None (occurrence: None)
  Receive Date: 20110816
  Receipt Date: 20110713
  Transmission Date: 20111222
  Serious: Yes (Other)
  Sender: FDA-Public Use
  Company Number: IT-BAYER-2011-072490

PATIENT
  Age: 24 Year
  Sex: Male

DRUGS (1)
  1. NAPROXEN SODIUM [Suspect]
     Indication: SKIN TEST POSITIVE
     Dosage: 550 MG, QD
     Dates: start: 20110629, end: 20110629

REACTIONS (2)
  - URTICARIA [None]
  - ANGIOEDEMA [None]
